FAERS Safety Report 6133283-0 (Version None)
Quarter: 2009Q1

REPORT INFORMATION
  Report Type: 
  Country: None (occurrence: None)
  Receive Date: 20090324
  Receipt Date: 20090324
  Transmission Date: 20090719
  Serious: Yes (Death)
  Sender: FDA-Public Use
  Company Number: None

PATIENT
  Age: 42 Year
  Sex: Male
  Weight: 99.6 kg

DRUGS (14)
  1. RELISTOR [Suspect]
     Indication: ILEUS
     Dosage: 12 MG ONCE SUBCUT
     Route: 058
     Dates: start: 20090317
  2. HEPARIN [Concomitant]
  3. HYDRALAZINE HCL [Concomitant]
  4. LANSOPRAZOLE [Concomitant]
  5. VANCOMYCIN HCL [Concomitant]
  6. THIAMINE HCL [Concomitant]
  7. FOLIC ACID [Concomitant]
  8. SALINE [Concomitant]
  9. BISACODYL [Concomitant]
  10. DOCUSATE SODIUM [Concomitant]
  11. LARAZEPAM [Concomitant]
  12. BACLOFEN [Concomitant]
  13. CALCIUM GLUCONATE [Concomitant]
  14. MORPHINE SULFATE [Concomitant]

REACTIONS (5)
  - BRADYCARDIA [None]
  - CARDIAC ARREST [None]
  - FAECAL VOMITING [None]
  - RESPIRATORY ARREST [None]
  - VENTRICULAR FIBRILLATION [None]
